FAERS Safety Report 9095675 (Version 1)
Quarter: 2013Q1

REPORT INFORMATION
  Report Type: Spontaneous
  Country: DK (occurrence: None)
  Receive Date: 20130123
  Receipt Date: 20130123
  Transmission Date: 20140127
  Serious: Yes (Other)
  Sender: FDA-Public Use
  Company Number: 2013MA000498

PATIENT
  Age: 21 Year
  Sex: Female

DRUGS (3)
  1. ACETAMINOPHEN + CODEINE PHOSPHATE ORAL SOLUTION USP, 120 MG/12 MG PER 5 ML (ALPHARMA) (GALENIC/PARACETAMOL/CODEINE/) [Suspect]
     Indication: HEADACHE
     Route: 048
  2. IBUPROFEN [Concomitant]
  3. MEFENAMIC ACID [Concomitant]

REACTIONS (7)
  - Dissociation [None]
  - Paraesthesia [None]
  - Photophobia [None]
  - Migraine with aura [None]
  - Irritability [None]
  - Emotional disorder [None]
  - Depression [None]
